FAERS Safety Report 4530573-X (Version None)
Quarter: 2004Q4

REPORT INFORMATION
  Report Type: 
  Country: None (occurrence: None)
  Receive Date: 20041217
  Receipt Date: 20041217
  Transmission Date: 20050328
  Serious: No
  Sender: FDA-Public Use
  Company Number: None

PATIENT
  Age: 17 Year
  Sex: Male

DRUGS (2)
  1. STRATTERA [Suspect]
  2. MINOCYCLINE HCL [Concomitant]

REACTIONS (2)
  - ARTHRALGIA [None]
  - LIVER FUNCTION TEST ABNORMAL [None]
